FAERS Safety Report 25646070 (Version 1)
Quarter: 2025Q3

REPORT INFORMATION
  Report Type: Spontaneous
  Country: US (occurrence: US)
  Receive Date: 20250805
  Receipt Date: 20250805
  Transmission Date: 20251021
  Serious: No
  Sender: BAUSCH AND LOMB
  Company Number: US-BAUSCH-BH-2025-015613

PATIENT
  Age: 63 Year
  Sex: Male

DRUGS (2)
  1. ARESTIN [Suspect]
     Active Substance: MINOCYCLINE HYDROCHLORIDE
     Indication: Gingivitis
     Route: 065
     Dates: start: 20250715, end: 20250715
  2. ARESTIN [Suspect]
     Active Substance: MINOCYCLINE HYDROCHLORIDE
     Route: 065
     Dates: start: 20250717, end: 20250717

REACTIONS (1)
  - Administration site haemorrhage [Recovered/Resolved]

NARRATIVE: CASE EVENT DATE: 20250727
